FAERS Safety Report 16130661 (Version 4)
Quarter: 2019Q3

REPORT INFORMATION
  Report Type: Report from Study
  Country: US (occurrence: US)
  Receive Date: 20190328
  Receipt Date: 20190814
  Transmission Date: 20191004
  Serious: Yes (Death, Life-Threatening, Other)
  Sender: FDA-Public Use
  Company Number: PHHY2018US201278

PATIENT
  Age: 23 Year
  Sex: Male

DRUGS (3)
  1. CYCLOPHOSPHAMIDE. [Concomitant]
     Active Substance: CYCLOPHOSPHAMIDE
     Indication: CHEMOTHERAPY
     Route: 065
  2. FLUDARABINE [Concomitant]
     Active Substance: FLUDARABINE PHOSPHATE
     Indication: CHEMOTHERAPY
     Route: 065
  3. KYMRIAH [Suspect]
     Active Substance: TISAGENLECLEUCEL
     Indication: B-CELL TYPE ACUTE LEUKAEMIA
     Dosage: ONCE/SINGLE
     Route: 041
     Dates: start: 2018

REACTIONS (13)
  - Malignant neoplasm progression [Fatal]
  - Cytopenia [Not Recovered/Not Resolved]
  - Cytokine release syndrome [Unknown]
  - Platelet count decreased [Not Recovered/Not Resolved]
  - Hepatotoxicity [Unknown]
  - Hypogammaglobulinaemia [Recovered/Resolved]
  - Pyrexia [Unknown]
  - Cytokine release syndrome [Recovered/Resolved]
  - Neutrophil count decreased [Not Recovered/Not Resolved]
  - Depressed level of consciousness [Unknown]
  - B-cell type acute leukaemia [Fatal]
  - Neurotoxicity [Recovered/Resolved]
  - Treatment failure [Unknown]
